FAERS Safety Report 6420963-2 (Version None)
Quarter: 2009Q4

REPORT INFORMATION
  Report Type: 
  Country: None (occurrence: None)
  Receive Date: 20091030
  Receipt Date: 20091021
  Transmission Date: 20100525
  Serious: Yes (Other)
  Sender: FDA-Public Use
  Company Number: BR-JNJFOC-20091008206

PATIENT

DRUGS (1)
  1. REMINYL ER [Suspect]
     Indication: DEMENTIA ALZHEIMER'S TYPE
     Route: 065

REACTIONS (2)
  - MEDICATION ERROR [None]
  - NO ADVERSE EVENT [None]
